FAERS Safety Report 8148966-0 (Version None)
Quarter: 2012Q1

REPORT INFORMATION
  Report Type: 
  Country: None (occurrence: None)
  Receive Date: 20120218
  Receipt Date: 20110805
  Transmission Date: 20120608
  Serious: No
  Sender: FDA-Public Use
  Company Number: US-ALLERGAN-1110602US

PATIENT
  Age: 76 Year
  Sex: Female

DRUGS (2)
  1. BOTULINUM TOXIN TYPE A [Suspect]
     Dosage: UNK UNITS, SINGLE
     Route: 030
     Dates: start: 20110501, end: 20110501
  2. BOTULINUM TOXIN TYPE A [Suspect]
     Indication: TORTICOLLIS
     Dosage: 300 UNITS, SINGLE
     Route: 030
     Dates: start: 20110802, end: 20110802

REACTIONS (1)
  - INJECTION SITE PAIN [None]
